FAERS Safety Report 7124812-9 (Version None)
Quarter: 2010Q4

REPORT INFORMATION
  Report Type: 
  Country: None (occurrence: None)
  Receive Date: 20101129
  Receipt Date: 20101118
  Transmission Date: 20110411
  Serious: Yes (Hospitalization)
  Sender: FDA-Public Use
  Company Number: CA-JNJFOC-20101106528

PATIENT
  Sex: Female
  Weight: 78.2 kg

DRUGS (1)
  1. REMICADE [Suspect]
     Indication: CROHN'S DISEASE
     Dosage: DURATION:87 WEEKS.
     Route: 042

REACTIONS (4)
  - ABDOMINAL PAIN [None]
  - APPENDIX DISORDER [None]
  - NAUSEA [None]
  - VOMITING [None]
